FAERS Safety Report 7015019-4 (Version None)
Quarter: 2010Q3

REPORT INFORMATION
  Report Type: 
  Country: None (occurrence: None)
  Receive Date: 20100927
  Receipt Date: 20100625
  Transmission Date: 20110219
  Serious: No
  Sender: FDA-Public Use
  Company Number: US-ASTRAZENECA-2005UW10545

PATIENT
  Age: 69 Year
  Sex: Female
  Weight: 74.8 kg

DRUGS (2)
  1. ARIMIDEX [Suspect]
     Indication: BREAST CANCER
     Route: 048
     Dates: start: 20050101, end: 20100101
  2. ENALAPRIL [Concomitant]
     Indication: HYPERTENSION

REACTIONS (6)
  - BLOOD CHOLESTEROL INCREASED [None]
  - COUGH [None]
  - DYSMENORRHOEA [None]
  - FATIGUE [None]
  - PAIN IN EXTREMITY [None]
  - SENSATION OF HEAVINESS [None]
